FAERS Safety Report 24408663 (Version 2)
Quarter: 2025Q4

REPORT INFORMATION
  Report Type: Spontaneous
  Country: US (occurrence: US)
  Receive Date: 20241007
  Receipt Date: 20251001
  Transmission Date: 20260118
  Serious: No
  Sender: RECKITT BENCKISER
  Company Number: US-Indivior Limited-INDV-144965-2024

PATIENT
  Sex: Male

DRUGS (2)
  1. SUBLOCADE [Suspect]
     Active Substance: BUPRENORPHINE
     Indication: Drug dependence
     Dosage: 300 MILLIGRAM, QMO
     Route: 065
     Dates: start: 20240419
  2. SUBLOCADE [Suspect]
     Active Substance: BUPRENORPHINE

REACTIONS (6)
  - Dysuria [Unknown]
  - Euphoric mood [Not Recovered/Not Resolved]
  - Somnolence [Unknown]
  - Lethargy [Unknown]
  - Constipation [Unknown]
  - Injection site induration [Recovered/Resolved]

NARRATIVE: CASE EVENT DATE: 20240101
